FAERS Safety Report 15808967 (Version 2)
Quarter: 2019Q1

REPORT INFORMATION
  Report Type: Spontaneous
  Country: US (occurrence: US)
  Receive Date: 20190110
  Receipt Date: 20190123
  Transmission Date: 20190417
  Serious: Yes (Hospitalization)
  Sender: FDA-Public Use
  Company Number: US-OTSUKA-2018_025859

PATIENT
  Age: 27 Year
  Sex: Female

DRUGS (7)
  1. ABILIFY [Suspect]
     Active Substance: ARIPIPRAZOLE
     Indication: BIPOLAR DISORDER
     Dosage: 20 MG, QD
     Route: 048
     Dates: start: 20071101, end: 20171201
  2. ABILIFY [Suspect]
     Active Substance: ARIPIPRAZOLE
     Indication: IRRITABILITY
  3. ABILIFY [Suspect]
     Active Substance: ARIPIPRAZOLE
     Indication: ANXIETY
  4. ARIPIPRAZOLE. [Concomitant]
     Active Substance: ARIPIPRAZOLE
     Indication: PRODUCT USED FOR UNKNOWN INDICATION
     Dosage: UNK
     Route: 065
     Dates: start: 20150630, end: 20161229
  5. ABILIFY [Suspect]
     Active Substance: ARIPIPRAZOLE
     Indication: AGITATION
  6. ABILIFY [Suspect]
     Active Substance: ARIPIPRAZOLE
     Indication: MAJOR DEPRESSION
  7. ABILIFY [Suspect]
     Active Substance: ARIPIPRAZOLE
     Indication: SOCIAL ANXIETY DISORDER

REACTIONS (24)
  - Rhinitis allergic [Unknown]
  - Hallucination, auditory [Unknown]
  - Deafness [Unknown]
  - Tenderness [Unknown]
  - Otitis externa [Unknown]
  - Cough [Unknown]
  - Divorced [Unknown]
  - Maternal exposure timing unspecified [Unknown]
  - Gastrooesophageal reflux disease [Unknown]
  - Constipation [Unknown]
  - Loss of employment [Unknown]
  - Theft [Not Recovered/Not Resolved]
  - Economic problem [Unknown]
  - Abdominal pain [Unknown]
  - Trichotillomania [Not Recovered/Not Resolved]
  - Obsessive-compulsive disorder [Not Recovered/Not Resolved]
  - Gambling disorder [Not Recovered/Not Resolved]
  - Dermatillomania [Not Recovered/Not Resolved]
  - Back pain [Unknown]
  - Compulsive shopping [Not Recovered/Not Resolved]
  - Mental disorder [Unknown]
  - Headache [Unknown]
  - Shoplifting [Unknown]
  - Product use in unapproved indication [Unknown]

NARRATIVE: CASE EVENT DATE: 20080101
